FAERS Safety Report 8959731 (Version 1)
Quarter: 2012Q4

REPORT INFORMATION
  Report Type: 
  Country: US (occurrence: US)
  Receive Date: 20121212
  Receipt Date: 20121212
  Transmission Date: 20130627
  Serious: No
  Sender: FDA-Public Use
  Company Number: US-009507513-1212USA003184

PATIENT
  Sex: Female

DRUGS (1)
  1. PEGINTRON [Suspect]
     Indication: HEPATITIS C
     Route: 058

REACTIONS (3)
  - Balance disorder [Unknown]
  - Vision blurred [Unknown]
  - Dry mouth [Unknown]
